FAERS Safety Report 14331394 (Version 1)
Quarter: 2017Q4

REPORT INFORMATION
  Report Type: Spontaneous
  Country: SK (occurrence: SK)
  Receive Date: 20171228
  Receipt Date: 20171228
  Transmission Date: 20180321
  Serious: Yes (Other)
  Sender: FDA-Public Use
  Company Number: SK-MERCK KGAA-2037864

PATIENT
  Age: 30 Year
  Sex: Female

DRUGS (1)
  1. NOVOTHYROX [Suspect]
     Active Substance: LEVOTHYROXINE SODIUM
     Indication: HYPERTHYROIDISM

REACTIONS (7)
  - Polyhydramnios [None]
  - Amniorrhoea [None]
  - Complication of pregnancy [Recovered/Resolved]
  - Premature delivery [Recovered/Resolved]
  - Diaphragmatic hernia [None]
  - Live birth [Recovered/Resolved]
  - Maternal exposure during pregnancy [Recovered/Resolved]
